FAERS Safety Report 20059334 (Version 1)
Quarter: 2021Q4

REPORT INFORMATION
  Report Type: Spontaneous
  Country: US (occurrence: None)
  Receive Date: 20211111
  Receipt Date: 20211111
  Transmission Date: 20220304
  Serious: Yes (Other)
  Sender: FDA-Public Use
  Company Number: None

PATIENT
  Age: 27 Year
  Sex: Female
  Weight: 42.1 kg

DRUGS (1)
  1. PREGABALIN [Suspect]
     Active Substance: PREGABALIN
     Indication: Abdominal discomfort
     Dosage: OTHER FREQUENCY : 1-2;?
     Route: 048
     Dates: start: 20190513, end: 20200207

REACTIONS (2)
  - Product substitution issue [None]
  - Adverse event [None]

NARRATIVE: CASE EVENT DATE: 20190513
